FAERS Safety Report 16970710 (Version 1)
Quarter: 2019Q4

REPORT INFORMATION
  Report Type: Spontaneous
  Country: US (occurrence: US)
  Receive Date: 20191029
  Receipt Date: 20191029
  Transmission Date: 20200122
  Serious: No
  Sender: FDA-Public Use
  Company Number: US-VIFOR (INTERNATIONAL) INC.-VIT-2019-10481

PATIENT
  Sex: Male

DRUGS (11)
  1. LEVEMIR [Concomitant]
     Active Substance: INSULIN DETEMIR
  2. FISH OIL [Concomitant]
     Active Substance: FISH OIL
  3. LYRICA [Concomitant]
     Active Substance: PREGABALIN
  4. NOVOLOG [Concomitant]
     Active Substance: INSULIN ASPART
  5. ASPIRIN. [Concomitant]
     Active Substance: ASPIRIN
  6. LIPITOR [Concomitant]
     Active Substance: ATORVASTATIN CALCIUM
  7. OMEGA 3 [Concomitant]
     Active Substance: OMEGA-3 FATTY ACIDS
  8. MULTI VITAMIN [Concomitant]
     Active Substance: VITAMINS
  9. VICTOZA [Concomitant]
     Active Substance: LIRAGLUTIDE
  10. VELTASSA [Suspect]
     Active Substance: PATIROMER
     Indication: HYPERKALAEMIA
     Route: 048
     Dates: start: 20180605
  11. METOPROLOL. [Concomitant]
     Active Substance: METOPROLOL

REACTIONS (1)
  - Diarrhoea [Unknown]
